FAERS Safety Report 7944462-1 (Version None)
Quarter: 2011Q4

REPORT INFORMATION
  Report Type: 
  Country: None (occurrence: None)
  Receive Date: 20111122
  Receipt Date: 20110726
  Transmission Date: 20120403
  Serious: Yes (Other)
  Sender: FDA-Public Use
  Company Number: PHHY2011US47854

PATIENT
  Age: 50 Year
  Sex: Female
  Weight: 56.7 kg

DRUGS (13)
  1. GABAPENTIN [Concomitant]
  2. MAGNESIUM (MAGNESIUM) [Concomitant]
  3. VITAMIN D [Concomitant]
  4. CYMBALTA [Concomitant]
  5. COQ10 (UBIDECARENONE) [Concomitant]
  6. ITAMIN E (TOCOPHEROL) [Concomitant]
  7. MULTIVITAMINS (ASCORBIC ACID), ERGOCALCIFEROL, FOLIC ACID,E NICOETINAM [Concomitant]
  8. LOVAZA [Concomitant]
  9. CALCIUM CARBONATE [Concomitant]
  10. GILENYA [Suspect]
     Indication: MULTIPLE SCLEROSIS
     Dosage: 0.5 MG, QD, ORAL
     Route: 048
  11. ACIDOPHILUS (LACTOBACILLUS ACIDOPHILUS) [Concomitant]
  12. FLAXSEED OIL (LINUM USITATISSIMUM SEED OIL) [Concomitant]
  13. NITROFURANTOIN [Concomitant]

REACTIONS (3)
  - RESPIRATORY TRACT INFECTION [None]
  - COUGH [None]
  - ABDOMINAL PAIN [None]
